FAERS Safety Report 8588050-5 (Version None)
Quarter: 2012Q3

REPORT INFORMATION
  Report Type: 
  Country: None (occurrence: None)
  Receive Date: 20120813
  Receipt Date: 20120807
  Transmission Date: 20120928
  Serious: No
  Sender: FDA-Public Use
  Company Number: US-PFIZER INC-2012193730

PATIENT
  Age: 62 Year
  Sex: Female
  Weight: 63.5 kg

DRUGS (2)
  1. SERTRALINE HYDROCHLORIDE [Suspect]
     Indication: DEPRESSION
     Dosage: 50 MG, DAILY
  2. CARBAMAZEPINE [Concomitant]
     Indication: EPILEPSY
     Dosage: 200 MG, 2X/DAY

REACTIONS (3)
  - BLOOD CHOLESTEROL INCREASED [None]
  - INSOMNIA [None]
  - ANXIETY [None]
